FAERS Safety Report 8220143-4 (Version None)
Quarter: 2012Q1

REPORT INFORMATION
  Report Type: 
  Country: None (occurrence: None)
  Receive Date: 20120320
  Receipt Date: 20120307
  Transmission Date: 20120608
  Serious: Yes (Hospitalization, Other)
  Sender: FDA-Public Use
  Company Number: JP-ELI_LILLY_AND_COMPANY-JP201202000932

PATIENT
  Sex: Male
  Weight: 47 kg

DRUGS (17)
  1. LANTUS [Concomitant]
     Indication: PANCREATOGENOUS DIABETES
     Dosage: UNK
     Route: 058
     Dates: start: 20110117, end: 20110314
  2. LANTUS [Concomitant]
     Dosage: UNK
     Route: 058
     Dates: start: 20110510, end: 20110521
  3. NOVORAPID [Concomitant]
     Dosage: UNK
     Route: 058
  4. NOVORAPID [Concomitant]
     Indication: PANCREATOGENOUS DIABETES
     Dosage: UNK
     Route: 058
     Dates: start: 20110907
  5. ACYCLOVIR [Concomitant]
     Indication: HERPES ZOSTER
     Dosage: UNK
     Route: 042
     Dates: start: 20110514, end: 20110520
  6. LANTUS [Concomitant]
     Dosage: UNK
     Route: 058
     Dates: start: 20110315, end: 20110411
  7. HUMALOG [Suspect]
     Dosage: UNK
     Route: 058
     Dates: start: 20110607, end: 20110906
  8. HUMULIN R [Suspect]
     Indication: PANCREATOGENOUS DIABETES
     Dosage: UNK
     Route: 042
     Dates: start: 20110113, end: 20110101
  9. HUMULIN R [Suspect]
     Dosage: UNK
     Route: 042
     Dates: start: 20111129, end: 20120202
  10. NOVOLIN N [Concomitant]
     Indication: PANCREATOGENOUS DIABETES
     Dosage: UNK
     Route: 058
     Dates: start: 20110522, end: 20110906
  11. HUMALOG [Suspect]
     Indication: PANCREATOGENOUS DIABETES
     Dosage: UNK
     Route: 058
     Dates: start: 20110117, end: 20110411
  12. LYRICA [Concomitant]
     Indication: HERPES ZOSTER
     Dosage: UNK
     Route: 048
     Dates: start: 20110521, end: 20110901
  13. HUMULIN R [Suspect]
     Dosage: UNK
     Route: 042
     Dates: start: 20110101, end: 20110119
  14. LANTUS [Concomitant]
     Dosage: UNK
     Route: 058
     Dates: start: 20110412, end: 20110509
  15. HUMALOG [Suspect]
     Dosage: UNK
     Route: 058
     Dates: start: 20110412, end: 20110606
  16. NOVOLIN N [Concomitant]
     Dosage: UNK
     Route: 058
     Dates: start: 20120207
  17. NOVORAPID [Concomitant]
     Dosage: UNK
     Route: 058
     Dates: start: 20111220

REACTIONS (5)
  - HYPERGLYCAEMIA [None]
  - ANTI-INSULIN ANTIBODY POSITIVE [None]
  - MALNUTRITION [None]
  - HYPOGLYCAEMIA [None]
  - DECREASED APPETITE [None]
